FAERS Safety Report 16780568 (Version 4)
Quarter: 2019Q4

REPORT INFORMATION
  Report Type: Spontaneous
  Country: US (occurrence: US)
  Receive Date: 20190906
  Receipt Date: 20191223
  Transmission Date: 20200122
  Serious: No
  Sender: FDA-Public Use
  Company Number: US-SA-2019SA243550

PATIENT
  Age: 60 Year
  Sex: Female

DRUGS (1)
  1. LANTUS SOLOSTAR [Suspect]
     Active Substance: INSULIN GLARGINE
     Indication: TYPE 2 DIABETES MELLITUS
     Dosage: 15 U, BID
     Route: 065

REACTIONS (6)
  - Fall [Unknown]
  - Limb injury [Unknown]
  - Inappropriate schedule of product administration [Unknown]
  - Device operational issue [Unknown]
  - Product dose omission [Unknown]
  - Blood glucose increased [Unknown]
